FAERS Safety Report 7461441-1 (Version None)
Quarter: 2011Q2

REPORT INFORMATION
  Report Type: 
  Country: None (occurrence: None)
  Receive Date: 20110506
  Receipt Date: 20110504
  Transmission Date: 20111010
  Serious: No
  Sender: FDA-Public Use
  Company Number: US-PFIZER INC-2011085165

PATIENT
  Sex: Female
  Weight: 74.83 kg

DRUGS (2)
  1. HYDROCHLOROTHIAZIDE [Concomitant]
     Indication: HYPERTENSION
     Dosage: 25 MG, 1X/DAY
     Route: 048
  2. ADVIL LIQUI-GELS [Suspect]
     Dosage: 200 MG, 1X/DAY
     Route: 048
     Dates: start: 20110418, end: 20110418

REACTIONS (4)
  - HEADACHE [None]
  - CHEST PAIN [None]
  - PRURITUS [None]
  - WHEEZING [None]
